FAERS Safety Report 13164230 (Version 3)
Quarter: 2017Q2

REPORT INFORMATION
  Report Type: Spontaneous
  Country: US (occurrence: US)
  Receive Date: 20170130
  Receipt Date: 20170427
  Transmission Date: 20170830
  Serious: Yes (Other)
  Sender: FDA-Public Use
  Company Number: US-009507513-1701USA011732

PATIENT
  Age: 19 Year
  Sex: Female
  Weight: 103.4 kg

DRUGS (2)
  1. NEXPLANON [Suspect]
     Active Substance: ETONOGESTREL
     Indication: CONTRACEPTION
     Dosage: 1 DF, UNK
     Route: 059
     Dates: start: 20141031, end: 20160519
  2. NEXPLANON [Suspect]
     Active Substance: ETONOGESTREL
     Dosage: 1 DF, UNK
     Route: 059
     Dates: start: 20161129, end: 20170209

REACTIONS (6)
  - Headache [Unknown]
  - Insomnia [Unknown]
  - Poor quality sleep [Unknown]
  - Vaginal haemorrhage [Unknown]
  - Mood swings [Unknown]
  - Retinitis pigmentosa [Unknown]

NARRATIVE: CASE EVENT DATE: 201612
